FAERS Safety Report 6552907-7 (Version None)
Quarter: 2010Q1

REPORT INFORMATION
  Report Type: 
  Country: None (occurrence: None)
  Receive Date: 20100122
  Receipt Date: 20100106
  Transmission Date: 20100710
  Serious: Yes (Other)
  Sender: FDA-Public Use
  Company Number: 2010SP001236

PATIENT
  Age: 34 Month
  Sex: Female
  Weight: 11 kg

DRUGS (1)
  1. REMERON [Suspect]
     Indication: ACCIDENTAL DRUG INTAKE BY CHILD
     Dosage: 165 MG;ONCE

REACTIONS (6)
  - ACCIDENTAL DRUG INTAKE BY CHILD [None]
  - ACCIDENTAL OVERDOSE [None]
  - NAUSEA [None]
  - SOMNOLENCE [None]
  - VISUAL IMPAIRMENT [None]
  - VOMITING [None]
